FAERS Safety Report 7954715-9 (Version None)
Quarter: 2011Q4

REPORT INFORMATION
  Report Type: 
  Country: None (occurrence: None)
  Receive Date: 20111202
  Receipt Date: 20111130
  Transmission Date: 20120403
  Serious: Yes (Hospitalization)
  Sender: FDA-Public Use
  Company Number: FR-ROCHE-1017978

PATIENT
  Sex: Male

DRUGS (8)
  1. EXFORGE [Concomitant]
     Dates: end: 20110705
  2. PEGASYS [Suspect]
     Indication: HEPATITIS C
     Route: 058
     Dates: start: 20110121, end: 20110705
  3. CRESTOR [Concomitant]
     Dates: end: 20110705
  4. VALSARTAN [Concomitant]
     Dates: start: 20110705
  5. COPEGUS [Concomitant]
     Indication: HEPATITIS C
  6. EZETIMIBE [Concomitant]
     Dates: end: 20110705
  7. INDAPAMIDE [Concomitant]
     Dates: end: 20110705
  8. RASILEZ [Concomitant]
     Dates: start: 20110705

REACTIONS (2)
  - NEPHROTIC SYNDROME [None]
  - RENAL FAILURE ACUTE [None]
